FAERS Safety Report 7125779-X (Version None)
Quarter: 2010Q4

REPORT INFORMATION
  Report Type: 
  Country: None (occurrence: None)
  Receive Date: 20101129
  Receipt Date: 20101124
  Transmission Date: 20110411
  Serious: Yes (Life-Threatening)
  Sender: FDA-Public Use
  Company Number: B0685854A

PATIENT
  Sex: Male

DRUGS (7)
  1. AUGMENTIN [Suspect]
     Dosage: 500MG TWICE PER DAY
     Route: 048
     Dates: start: 20101004, end: 20101012
  2. LASILIX [Suspect]
     Indication: DIURETIC THERAPY
     Dosage: 500MG PER DAY
     Route: 048
     Dates: start: 20101004, end: 20101012
  3. CALCIDIA [Suspect]
     Dosage: 4.62MG PER DAY
     Route: 048
     Dates: start: 20100920, end: 20101004
  4. UVEDOSE [Suspect]
     Dosage: 100000IU MONTHLY
     Route: 048
     Dates: start: 20101006, end: 20101018
  5. NEXIUM [Suspect]
     Indication: GASTRIC ULCER
     Dosage: 20MG PER DAY
     Route: 048
     Dates: start: 20101004, end: 20101012
  6. PARACETAMOL [Suspect]
     Indication: PAIN
     Dosage: 1G PER DAY
     Route: 048
     Dates: start: 20101004, end: 20101018
  7. PERITONEAL DIALYSIS [Concomitant]
     Route: 065
     Dates: start: 20100922

REACTIONS (1)
  - PANCYTOPENIA [None]
